FAERS Safety Report 7396950-7 (Version None)
Quarter: 2011Q2

REPORT INFORMATION
  Report Type: 
  Country: None (occurrence: None)
  Receive Date: 20110406
  Receipt Date: 20110328
  Transmission Date: 20111010
  Serious: Yes (Hospitalization)
  Sender: FDA-Public Use
  Company Number: FR-ASTRAZENECA-2011SE18589

PATIENT
  Age: 30252 Day
  Sex: Female

DRUGS (9)
  1. CAPTOPRIL [Concomitant]
     Indication: HYPERTENSION
     Route: 048
     Dates: end: 20100326
  2. NEXIUM [Suspect]
     Indication: GASTROOESOPHAGEAL REFLUX DISEASE
     Route: 048
     Dates: end: 20100326
  3. FUROSEMIDE [Concomitant]
     Indication: HYPERTENSION
     Route: 048
     Dates: end: 20100326
  4. RHINOTROPHYL [Concomitant]
     Indication: RHINITIS
     Dates: end: 20100326
  5. LOXEN [Concomitant]
     Indication: HYPERTENSION
     Dates: end: 20100326
  6. TAHOR [Concomitant]
     Indication: HYPERCHOLESTEROLAEMIA
     Route: 048
     Dates: end: 20100326
  7. LEPTICUR [Concomitant]
     Indication: PARKINSONISM
     Route: 048
     Dates: start: 20100318, end: 20100326
  8. SEROPLEX [Interacting]
     Indication: DEPRESSION
     Route: 048
     Dates: start: 20100210, end: 20100326
  9. PREVISCAN [Concomitant]
     Indication: THROMBOSIS PROPHYLAXIS
     Route: 048
     Dates: end: 20100326

REACTIONS (2)
  - SEROTONIN SYNDROME [None]
  - DRUG INTERACTION [None]
